FAERS Safety Report 5692934-5 (Version None)
Quarter: 2008Q2

REPORT INFORMATION
  Report Type: 
  Country: None (occurrence: None)
  Receive Date: 20080328
  Receipt Date: 20070315
  Transmission Date: 20081010
  Serious: Yes (Other)
  Sender: FDA-Public Use
  Company Number: HQWYE054119MAR07

PATIENT
  Age: 49 Year
  Sex: Female
  Weight: 59.02 kg

DRUGS (1)
  1. PROTONIX [Suspect]
     Indication: DYSPEPSIA
     Dosage: 40 MG 1X PER 1 DAY, ORAL
     Route: 048
     Dates: start: 20070212, end: 20070216

REACTIONS (7)
  - ASTHENOPIA [None]
  - CHEST DISCOMFORT [None]
  - CHEST PAIN [None]
  - HEADACHE [None]
  - MEMORY IMPAIRMENT [None]
  - MENTAL IMPAIRMENT [None]
  - MUSCULOSKELETAL DISCOMFORT [None]
